FAERS Safety Report 15344742 (Version 1)
Quarter: 2018Q3

REPORT INFORMATION
  Report Type: Spontaneous
  Country: AU (occurrence: AU)
  Receive Date: 20180903
  Receipt Date: 20180903
  Transmission Date: 20181010
  Serious: Yes (Life-Threatening)
  Sender: FDA-Public Use
  Company Number: PHHY2018AU082555

PATIENT
  Sex: Male

DRUGS (2)
  1. PHOSPHATE BUFFERED SALINE [Concomitant]
     Indication: PRODUCT USED FOR UNKNOWN INDICATION
     Route: 065
  2. COSENTYX [Suspect]
     Active Substance: SECUKINUMAB
     Indication: ANKYLOSING SPONDYLITIS
     Dosage: 150 MG, QMO (FORTNIGHTLY)
     Route: 058

REACTIONS (2)
  - Off label use [Unknown]
  - Iridocyclitis [Unknown]
